FAERS Safety Report 10023590 (Version 1)
Quarter: 2014Q1

REPORT INFORMATION
  Report Type: Spontaneous
  Country: US (occurrence: US)
  Receive Date: 20140320
  Receipt Date: 20140320
  Transmission Date: 20141002
  Serious: No
  Sender: FDA-Public Use
  Company Number: US-MYLANLABS-2013S1025297

PATIENT
  Age: 58 Year
  Sex: Female
  Weight: 56.25 kg

DRUGS (3)
  1. TERAZOSIN HYDROCHLORIDE ANHYDROUS CAPSULES [Suspect]
     Indication: BLADDER NECK OBSTRUCTION
     Route: 048
     Dates: start: 201310, end: 20131104
  2. VAGIFEM [Concomitant]
     Route: 067
  3. HYDROXYZINE [Concomitant]
     Indication: ANXIETY
     Route: 048

REACTIONS (1)
  - Vulvovaginal burning sensation [Not Recovered/Not Resolved]
